FAERS Safety Report 15074635 (Version 1)
Quarter: 2018Q2

REPORT INFORMATION
  Report Type: Spontaneous
  Country: US (occurrence: US)
  Receive Date: 20180627
  Receipt Date: 20180627
  Transmission Date: 20180711
  Serious: Yes (Other)
  Sender: FDA-Public Use
  Company Number: US-SAOL THERAPEUTICS-2018SAO00771

PATIENT
  Age: 65 Year
  Sex: Male
  Weight: 93.88 kg

DRUGS (30)
  1. ASPIRIN. [Concomitant]
     Active Substance: ASPIRIN
     Dosage: 81 MG, 1X/DAY
     Route: 048
  2. BISOPROLOL FUMARATE. [Concomitant]
     Active Substance: BISOPROLOL FUMARATE
  3. DICLOFENAC [Concomitant]
     Active Substance: DICLOFENAC
     Dosage: 4 G, 4X/DAY
     Route: 061
  4. DICYCLOMINE [Concomitant]
     Active Substance: DICYCLOMINE HYDROCHLORIDE
  5. LOVASTATIN. [Concomitant]
     Active Substance: LOVASTATIN
     Dosage: 10 MG, 1X/DAY
  6. GAVILYTE - N [Concomitant]
     Active Substance: POLYETHYLENE GLYCOL 3350\POTASSIUM CHLORIDE\SODIUM BICARBONATE\SODIUM CHLORIDE
  7. GINGER ROOT [Concomitant]
     Active Substance: GINGER
  8. GLNP (RR) (G5N5) CREAM [Concomitant]
  9. VITAMIN D3 [Concomitant]
     Active Substance: CHOLECALCIFEROL
     Dosage: 2000 IU, 1X/DAY
  10. LIORESAL [Suspect]
     Active Substance: BACLOFEN
     Indication: PAIN
     Dosage: 322.2 ?G, \DAY
     Route: 037
  11. LIORESAL [Suspect]
     Active Substance: BACLOFEN
     Indication: POST LAMINECTOMY SYNDROME
  12. TRIAMCINOLONE ACETONIDE. [Concomitant]
     Active Substance: TRIAMCINOLONE ACETONIDE
  13. BETAMETHASONE DIPROPIONATE. [Concomitant]
     Active Substance: BETAMETHASONE DIPROPIONATE
  14. DOXYCYCLINE HYCLATE. [Concomitant]
     Active Substance: DOXYCYCLINE HYCLATE
     Dosage: 100 MG, 2X/DAY
     Route: 048
  15. LOSARTAN. [Concomitant]
     Active Substance: LOSARTAN
  16. MISOPROSTOL. [Concomitant]
     Active Substance: MISOPROSTOL
  17. NOVOLIN N [Concomitant]
     Active Substance: INSULIN HUMAN
  18. BACLOFEN. [Concomitant]
     Active Substance: BACLOFEN
     Dosage: 20 MG, 3X/DAY
  19. DILTIAZEM CD [Concomitant]
     Active Substance: DILTIAZEM
  20. GLP CREAM (RR) [Concomitant]
  21. METOCLOPRAMIDE. [Concomitant]
     Active Substance: METOCLOPRAMIDE
  22. NABUMETONE/CYCLO/GAB/LIDO/PRILO [Concomitant]
  23. COMPOUND CREAM [Concomitant]
     Active Substance: UNSPECIFIED INGREDIENT
  24. CYCLOBENZAPRINE. [Concomitant]
     Active Substance: CYCLOBENZAPRINE
     Dosage: 10 MG, UP TO 2X/DAY
     Route: 048
  25. HYOSCYAMINE ER [Concomitant]
     Active Substance: HYOSCYAMINE SULFATE
  26. LIDOCAINE-PRILOCAINE [Concomitant]
     Active Substance: LIDOCAINE\PRILOCAINE
  27. NITROGLYCERIN PATCH [Concomitant]
     Active Substance: NITROGLYCERIN
  28. PREDNISOLONE ACETATE. [Concomitant]
     Active Substance: PREDNISOLONE ACETATE
  29. KEFLEX [Concomitant]
     Active Substance: CEPHALEXIN
     Dosage: 500 MG, 2X/DAY
  30. ZALEPLON. [Concomitant]
     Active Substance: ZALEPLON
     Dosage: 10 MG, AS DIRECTED

REACTIONS (4)
  - Haematoma [Unknown]
  - Off label use [Unknown]
  - Fall [Unknown]
  - Drug withdrawal syndrome [Not Recovered/Not Resolved]

NARRATIVE: CASE EVENT DATE: 201803
